FAERS Safety Report 6489964-2 (Version None)
Quarter: 2009Q4

REPORT INFORMATION
  Report Type: 
  Country: None (occurrence: None)
  Receive Date: 20091211
  Receipt Date: 20091202
  Transmission Date: 20100525
  Serious: Yes (Hospitalization)
  Sender: FDA-Public Use
  Company Number: PHHY2009DE53609

PATIENT
  Sex: Female

DRUGS (6)
  1. EXELON [Suspect]
     Dosage: 3 MG DAILY
     Route: 048
  2. CLOZAPINE [Suspect]
  3. PARKOTIL [Concomitant]
     Dosage: 3 MG DAILY
     Route: 048
  4. STALEVO 100 [Concomitant]
     Dosage: 500 MG DAILY
     Route: 048
  5. MADOPAR [Concomitant]
     Dosage: 200 MG DAILY
     Route: 048
  6. MADOPAR DEPOT [Concomitant]
     Dosage: 100 MG DAILY
     Route: 048

REACTIONS (1)
  - DELIRIUM [None]
